FAERS Safety Report 6506252-6 (Version None)
Quarter: 2009Q4

REPORT INFORMATION
  Report Type: 
  Country: None (occurrence: None)
  Receive Date: 20091218
  Receipt Date: 20091218
  Transmission Date: 20100525
  Serious: Yes (Hospitalization)
  Sender: FDA-Public Use
  Company Number: PHHO2007US13252

PATIENT
  Sex: Male
  Weight: 103 kg

DRUGS (10)
  1. STARLIX [Suspect]
     Dosage: LEVEL 1
     Route: 048
     Dates: start: 20021015
  2. STARLIX [Suspect]
     Dosage: LEVEL 2
     Route: 048
     Dates: end: 20070801
  3. STARLIX [Suspect]
     Dosage: LEVEL 2
     Route: 048
     Dates: start: 20070803
  4. DIOVAN T30230+CAPS [Suspect]
     Indication: CARDIOVASCULAR DISORDER
     Dosage: LEVEL 1
     Route: 048
     Dates: start: 20021015
  5. DIOVAN T30230+CAPS [Suspect]
     Dosage: LEVEL 2
     Route: 048
     Dates: end: 20070801
  6. DIOVAN T30230+CAPS [Suspect]
     Dosage: LEVEL 2
     Route: 048
     Dates: start: 20070803
  7. FELODIPINE [Suspect]
     Indication: HYPERTENSION
     Dosage: 10 MG A.M
     Route: 048
     Dates: end: 20070801
  8. FELODIPINE [Suspect]
     Dosage: 5 MG P.M.
     Route: 048
     Dates: start: 20031102, end: 20070801
  9. FELODIPINE [Suspect]
     Dosage: 10 MG / DAY
     Route: 048
  10. DOXAZOSIN MESYLATE [Suspect]
     Dosage: 4 MG, QD
     Route: 048
     Dates: start: 20070427

REACTIONS (7)
  - CERVICAL VERTEBRAL FRACTURE [None]
  - CONTUSION [None]
  - FALL [None]
  - HYPOTENSION [None]
  - LOSS OF CONSCIOUSNESS [None]
  - SKIN LACERATION [None]
  - SYNCOPE [None]
